FAERS Safety Report 11684590 (Version 3)
Quarter: 2015Q4

REPORT INFORMATION
  Report Type: Report from Study
  Country: US (occurrence: US)
  Receive Date: 20151029
  Receipt Date: 20151204
  Transmission Date: 20160304
  Serious: Yes (Death, Hospitalization)
  Sender: FDA-Public Use
  Company Number: US-ACTELION-A-NJ2014-95956

PATIENT
  Age: 54 Year
  Sex: Female

DRUGS (6)
  1. ADCIRCA [Concomitant]
     Active Substance: TADALAFIL
     Dosage: 40 MG, QD
     Dates: start: 20121001
  2. TRACLEER [Suspect]
     Active Substance: BOSENTAN
     Indication: PULMONARY ARTERIAL HYPERTENSION
     Dosage: 125 MG, BID
     Route: 048
     Dates: end: 20151030
  3. REMODULIN [Concomitant]
     Active Substance: TREPROSTINIL
     Dosage: 25 NG/KG, PER MIN
  4. TRACLEER [Suspect]
     Active Substance: BOSENTAN
     Dosage: 62.5 MG, BID
     Route: 048
     Dates: start: 20100329
  5. CIALIS [Concomitant]
     Active Substance: TADALAFIL
  6. XARELTO [Concomitant]
     Active Substance: RIVAROXABAN

REACTIONS (15)
  - Cardiogenic shock [Fatal]
  - Pulmonary arterial pressure increased [Unknown]
  - Hypotension [Fatal]
  - Mechanical ventilation [Unknown]
  - Endotracheal intubation [Unknown]
  - Right ventricular failure [Fatal]
  - Pulmonary hypertension [Fatal]
  - Disease progression [Fatal]
  - Oxygen saturation abnormal [Unknown]
  - Cardiac arrest [Fatal]
  - Pulmonary arterial hypertension [Unknown]
  - Dyspnoea [Recovered/Resolved]
  - Lung infection [Fatal]
  - Hypoxia [Recovered/Resolved]
  - Bradycardia [Fatal]

NARRATIVE: CASE EVENT DATE: 20140304
